FAERS Safety Report 7313279-3 (Version None)
Quarter: 2011Q1

REPORT INFORMATION
  Report Type: 
  Country: None (occurrence: None)
  Receive Date: 20110225
  Receipt Date: 20110131
  Transmission Date: 20110831
  Serious: No
  Sender: FDA-Public Use
  Company Number: US-B.I. PHARMACEUTICALS,INC./RIDGEFIELD-2011-BP-03053BP

PATIENT
  Sex: Male

DRUGS (1)
  1. SPIRIVA [Suspect]
     Dosage: 18 MCG
     Route: 055
     Dates: start: 20101201, end: 20110113

REACTIONS (5)
  - BLOOD PRESSURE INCREASED [None]
  - OCULAR HYPERAEMIA [None]
  - EYE DISORDER [None]
  - HEART RATE INCREASED [None]
  - DRY MOUTH [None]
